FAERS Safety Report 7407101-4 (Version None)
Quarter: 2011Q2

REPORT INFORMATION
  Report Type: 
  Country: None (occurrence: None)
  Receive Date: 20110411
  Receipt Date: 20110331
  Transmission Date: 20111010
  Serious: Yes (Hospitalization, Other)
  Sender: FDA-Public Use
  Company Number: US-BAXTER-2011BH008625

PATIENT
  Age: 82 Year
  Sex: Male

DRUGS (2)
  1. DIANEAL [Suspect]
     Indication: PERITONEAL DIALYSIS
     Route: 033
  2. DIANEAL [Suspect]
     Indication: PERITONEAL DIALYSIS
     Route: 033

REACTIONS (9)
  - HIP FRACTURE [None]
  - MENTAL STATUS CHANGES [None]
  - HYPOTENSION [None]
  - PATELLA FRACTURE [None]
  - DELIRIUM [None]
  - ENCEPHALOPATHY [None]
  - LEUKOCYTOSIS [None]
  - FAECALOMA [None]
  - FALL [None]
